FAERS Safety Report 15402604 (Version 5)
Quarter: 2018Q4

REPORT INFORMATION
  Report Type: Spontaneous
  Country: GB (occurrence: GB)
  Receive Date: 20180919
  Receipt Date: 20181119
  Transmission Date: 20190204
  Serious: Yes (Life-Threatening, Other)
  Sender: FDA-Public Use
  Company Number: GB-PFIZER INC-2018341463

PATIENT
  Age: 26 Year
  Sex: Female

DRUGS (1)
  1. PREGABALIN. [Suspect]
     Active Substance: PREGABALIN
     Dosage: UNK
     Dates: start: 201303

REACTIONS (23)
  - Schizophrenia [Unknown]
  - Liver injury [Unknown]
  - Post-traumatic stress disorder [Unknown]
  - Skin laceration [Unknown]
  - Intestinal perforation [Unknown]
  - Psychotic disorder [Unknown]
  - Road traffic accident [Unknown]
  - Abortion spontaneous [Unknown]
  - Depression [Unknown]
  - Lethargy [Unknown]
  - Apathy [Unknown]
  - Spinal fracture [Unknown]
  - Multiple fractures [Unknown]
  - Intentional overdose [Unknown]
  - Cervical vertebral fracture [Unknown]
  - Brain injury [Unknown]
  - Loss of consciousness [Unknown]
  - Dissociative identity disorder [Unknown]
  - Paranoia [Unknown]
  - Limb injury [Unknown]
  - Memory impairment [Unknown]
  - Skull fracture [Unknown]
  - Suicide attempt [Unknown]
